FAERS Safety Report 12505677 (Version 1)
Quarter: 2016Q2

REPORT INFORMATION
  Report Type: Spontaneous
  Country: US (occurrence: US)
  Receive Date: 20160628
  Receipt Date: 20160628
  Transmission Date: 20160815
  Serious: No
  Sender: FDA-Public Use
  Company Number: US-KERYX BIOPHARMACEUTICALS, INC.-2016US002033

PATIENT
  Age: 48 Year
  Sex: Male

DRUGS (1)
  1. AURYXIA [Suspect]
     Active Substance: TETRAFERRIC TRICITRATE DECAHYDRATE
     Indication: HYPERPHOSPHATAEMIA
     Dosage: 3-4 TAB, TID, WITH MEALS
     Route: 048

REACTIONS (3)
  - Intentional overdose [Not Recovered/Not Resolved]
  - Haemoglobin increased [Unknown]
  - Drug ineffective [Not Recovered/Not Resolved]
